FAERS Safety Report 9540414 (Version 2)
Quarter: 2013Q4

REPORT INFORMATION
  Report Type: Report from Study
  Country: US (occurrence: US)
  Receive Date: 20130920
  Receipt Date: 20131002
  Transmission Date: 20140711
  Serious: Yes (Congenital Anomaly)
  Sender: FDA-Public Use
  Company Number: US-VIIV HEALTHCARE LIMITED-A1042298A

PATIENT
  Sex: 0

DRUGS (8)
  1. ZIDOVUDINE [Suspect]
     Indication: ANTIRETROVIRAL THERAPY
     Route: 064
  2. PREZISTA [Suspect]
     Indication: ANTIRETROVIRAL THERAPY
     Dosage: 1200MG PER DAY
     Route: 064
  3. INTELENCE [Suspect]
     Indication: ANTIRETROVIRAL THERAPY
     Route: 064
  4. ISENTRESS [Suspect]
     Indication: ANTIRETROVIRAL THERAPY
     Dosage: 800MG PER DAY
     Route: 064
  5. TRUVADA [Suspect]
     Indication: ANTIRETROVIRAL THERAPY
     Dosage: 1TAB UNKNOWN
     Route: 064
  6. APTIVUS [Suspect]
     Indication: ANTIRETROVIRAL THERAPY
     Dosage: 1000MG PER DAY
     Route: 064
  7. INSULIN ASPART [Suspect]
     Indication: GESTATIONAL DIABETES
     Route: 064
  8. NORVIR [Suspect]
     Indication: ANTIRETROVIRAL THERAPY
     Route: 064

REACTIONS (17)
  - Tethered cord syndrome [Unknown]
  - Lipodystrophy acquired [Unknown]
  - Genitalia external ambiguous [Unknown]
  - Gastrointestinal disorder congenital [Unknown]
  - Exomphalos [Unknown]
  - Caudal regression syndrome [Unknown]
  - Meningomyelocele [Unknown]
  - Sepsis neonatal [Unknown]
  - Congenital musculoskeletal anomaly [Unknown]
  - Cloacal exstrophy [Unknown]
  - Bladder agenesis [Unknown]
  - Meconium stain [Unknown]
  - Blood iron decreased [Unknown]
  - Umbilical cord abnormality [Unknown]
  - Erythema [Unknown]
  - Congenital anomaly [Unknown]
  - Foetal exposure during pregnancy [Unknown]
